FAERS Safety Report 11699110 (Version 2)
Quarter: 2015Q4

REPORT INFORMATION
  Report Type: Spontaneous
  Country: US (occurrence: None)
  Receive Date: 20151104
  Receipt Date: 20151116
  Transmission Date: 20160304
  Serious: No
  Sender: FDA-Public Use
  Company Number: US-MDT-ADR-2015-02083

PATIENT
  Age: 63 Year
  Sex: Female

DRUGS (1)
  1. BACLOFEN INTRATHECAL (500 MCG/ML) [Suspect]
     Active Substance: BACLOFEN
     Indication: MUSCLE SPASTICITY
     Dosage: 24 MCG/DAY

REACTIONS (2)
  - Sedation [None]
  - Adverse drug reaction [None]
